FAERS Safety Report 5429294-0 (Version None)
Quarter: 2007Q3

REPORT INFORMATION
  Report Type: 
  Country: None (occurrence: None)
  Receive Date: 20070829
  Receipt Date: 20070820
  Transmission Date: 20080115
  Serious: Yes (Hospitalization)
  Sender: FDA-Public Use
  Company Number: US-JNJFOC-20070504252

PATIENT
  Sex: Male
  Weight: 76.2 kg

DRUGS (16)
  1. REMICADE [Suspect]
     Route: 042
  2. REMICADE [Suspect]
     Route: 042
  3. REMICADE [Suspect]
     Indication: CROHN'S DISEASE
     Route: 042
  4. IMURAN [Concomitant]
     Indication: CROHN'S DISEASE
  5. AZATHIOPRINE [Concomitant]
  6. VITAMIN B-12 [Concomitant]
  7. CALTRATE [Concomitant]
     Route: 048
  8. ENTOCORT EC [Concomitant]
     Route: 048
  9. CIPRO [Concomitant]
     Route: 048
  10. FLOMAX [Concomitant]
     Route: 048
  11. FOLIC ACID [Concomitant]
     Route: 048
  12. MULTI-VITAMIN [Concomitant]
     Route: 048
  13. PREDNISONE TAB [Concomitant]
     Route: 048
  14. PRILOSEC [Concomitant]
     Route: 048
  15. QUESTRAN [Concomitant]
     Dosage: DOSE 4G/9G DAILY
     Route: 048
  16. VALTREX [Concomitant]
     Route: 048

REACTIONS (4)
  - CROHN'S DISEASE [None]
  - LUNG NEOPLASM [None]
  - MALIGNANT MELANOMA [None]
  - SMALL INTESTINAL OBSTRUCTION [None]
